FAERS Safety Report 23653307 (Version 1)
Quarter: 2024Q1

REPORT INFORMATION
  Report Type: Other
  Country: CN (occurrence: None)
  Receive Date: 20240320
  Receipt Date: 20240320
  Transmission Date: 20240410
  Serious: Yes (Other)
  Sender: FDA-Public Use
  Company Number: CN-ROCHE-3528048

PATIENT

DRUGS (4)
  1. TRASTUZUMAB [Suspect]
     Active Substance: TRASTUZUMAB
     Indication: Gastric cancer
     Dosage: THE FIRST DOSE WAS 8 MG/KG. AT 3-WEEK INTERVALS, 6 MG/KG MAINTENANCE INTRAVENOUS DRIP WAS GIVEN.
     Route: 041
  2. CAPECITABINE [Suspect]
     Active Substance: CAPECITABINE
     Indication: Gastric cancer
     Route: 048
  3. OXALIPLATIN [Suspect]
     Active Substance: OXALIPLATIN
     Indication: Gastric cancer
     Route: 042
  4. MOSAPRIDE [Suspect]
     Active Substance: MOSAPRIDE
     Indication: Gastric cancer
     Dosage: 250 - 500 MG/TIME
     Route: 042

REACTIONS (9)
  - White blood cell count decreased [Unknown]
  - Asthenia [Unknown]
  - Stomatitis [Unknown]
  - Nausea [Unknown]
  - Vomiting [Unknown]
  - Anaemia [Unknown]
  - Hepatic function abnormal [Unknown]
  - Neurotoxicity [Unknown]
  - Alopecia [Unknown]
